FAERS Safety Report 5213849-2 (Version None)
Quarter: 2007Q1

REPORT INFORMATION
  Report Type: 
  Country: None (occurrence: None)
  Receive Date: 20070117
  Receipt Date: 20070102
  Transmission Date: 20070707
  Serious: Yes (Hospitalization)
  Sender: FDA-Public Use
  Company Number: 234693

PATIENT
  Age: 38 Year
  Sex: Female

DRUGS (6)
  1. AVASTIN [Suspect]
     Indication: COLORECTAL CANCER
     Dosage: Q2W, INTRAVENOUS
     Route: 042
     Dates: start: 20060920
  2. ERBITUX (CETUXIMAB) [Suspect]
     Indication: COLORECTAL CANCER
     Dosage: 400 MG/M2, 1/WEEK, INTRAVENOUS
     Route: 042
     Dates: start: 20060920
  3. ELOXATIN [Suspect]
     Indication: COLORECTAL CANCER
     Dosage: 85 MG/M2, QW2, INTRAVENOUS
     Route: 042
     Dates: start: 20060920
  4. LEUCOVORIN CALCIUM [Suspect]
     Indication: COLORECTAL CANCER
     Dosage: 400 MG/M2, Q2W, INTRAVENOUS
     Route: 042
     Dates: start: 20060920
  5. FLUOROURACIL [Suspect]
     Indication: COLORECTAL CANCER
     Dosage: SEE IMAGE
     Dates: start: 20060920
  6. FLUOROURACIL [Suspect]
     Indication: COLORECTAL CANCER
     Dosage: 2400 MG/M2, INTRAVENOUS
     Route: 042

REACTIONS (6)
  - CATHETER RELATED COMPLICATION [None]
  - CHOLECYSTITIS [None]
  - EMBOLISM [None]
  - INFECTION [None]
  - THROMBOSIS [None]
  - VASCULAR ACCESS COMPLICATION [None]
